FAERS Safety Report 9315241 (Version 3)
Quarter: 2013Q3

REPORT INFORMATION
  Report Type: Spontaneous
  Country: JP (occurrence: JP)
  Receive Date: 20130529
  Receipt Date: 20130715
  Transmission Date: 20140515
  Serious: Yes (Death, Hospitalization, Other)
  Sender: FDA-Public Use
  Company Number: JP-ROCHE-1229159

PATIENT
  Age: 42 Year
  Sex: Female
  Weight: 51 kg

DRUGS (12)
  1. AVASTIN [Suspect]
     Indication: BREAST CANCER METASTATIC
     Route: 041
     Dates: start: 20130405, end: 20130502
  2. PACLITAXEL [Suspect]
     Indication: NEOADJUVANT THERAPY
     Dosage: DOSAGE IS UNCERTAIN
     Route: 041
  3. PACLITAXEL [Suspect]
     Indication: BREAST CANCER METASTATIC
     Route: 041
     Dates: start: 20130405, end: 20130405
  4. PACLITAXEL [Suspect]
     Indication: BREAST CANCER METASTATIC
     Route: 041
     Dates: start: 20130412, end: 20130419
  5. PACLITAXEL [Suspect]
     Indication: BREAST CANCER METASTATIC
     Route: 041
     Dates: start: 20130502, end: 20130502
  6. BARACLUDE [Concomitant]
     Indication: VIRAL HEPATITIS CARRIER
     Dosage: DOSAGE IS UNCERTAIN.
     Route: 048
     Dates: start: 20130329
  7. BARACLUDE [Concomitant]
     Indication: VIRAL HEPATITIS CARRIER
     Dosage: DOSAGE IS UNCERTAIN.
     Route: 048
     Dates: start: 20130427, end: 20130610
  8. PAROXETINE [Concomitant]
     Indication: DEPRESSION
     Route: 048
     Dates: start: 20130405, end: 20130612
  9. RILMAZAFONE HYDROCHLORIDE [Concomitant]
     Indication: INSOMNIA
     Route: 048
     Dates: start: 20130405, end: 20130612
  10. CELECOX [Concomitant]
     Indication: CANCER PAIN
     Route: 048
     Dates: start: 20130405, end: 20130610
  11. OXINORM (JAPAN) [Concomitant]
     Indication: CANCER PAIN
     Route: 048
     Dates: start: 20130405, end: 20130610
  12. OXYCONTIN [Concomitant]
     Indication: CANCER PAIN
     Route: 048
     Dates: start: 20130419, end: 20130610

REACTIONS (8)
  - Hepatic failure [Fatal]
  - Cachexia [Fatal]
  - Decreased appetite [Unknown]
  - Vomiting [Unknown]
  - Disseminated intravascular coagulation [Unknown]
  - Interstitial lung disease [Recovering/Resolving]
  - Rhinorrhoea [Unknown]
  - Protein urine [Recovering/Resolving]
